FAERS Safety Report 15335847 (Version 1)
Quarter: 2018Q3

REPORT INFORMATION
  Report Type: Spontaneous
  Country: US (occurrence: US)
  Receive Date: 20180830
  Receipt Date: 20180830
  Transmission Date: 20181010
  Serious: No
  Sender: FDA-Public Use
  Company Number: US-BAYER-2018-159160

PATIENT
  Sex: Female
  Weight: 45 kg

DRUGS (3)
  1. ALEVE [Suspect]
     Active Substance: NAPROXEN SODIUM
     Indication: PAIN
     Dosage: 2 DF, QD
     Route: 048
     Dates: start: 2014, end: 201808
  2. ALEVE [Suspect]
     Active Substance: NAPROXEN SODIUM
     Indication: PAIN
     Route: 048
     Dates: start: 2014, end: 201808
  3. CITRACAL [Concomitant]
     Active Substance: CALCIUM CITRATE

REACTIONS (4)
  - Drug ineffective [Unknown]
  - Headache [Recovered/Resolved]
  - Off label use [Unknown]
  - Incorrect drug administration duration [Unknown]

NARRATIVE: CASE EVENT DATE: 2014
